FAERS Safety Report 9731736 (Version 2)
Quarter: 2013Q4

REPORT INFORMATION
  Report Type: Report from Study
  Country: CA (occurrence: CA)
  Receive Date: 20131205
  Receipt Date: 20131212
  Transmission Date: 20140711
  Serious: Yes (Hospitalization, Other)
  Sender: FDA-Public Use
  Company Number: CA-UCBSA-104639

PATIENT
  Age: 28 Year
  Sex: Female
  Weight: 97.5 kg

DRUGS (2)
  1. CIMZIA [Suspect]
     Indication: RHEUMATOID ARTHRITIS
     Dosage: 200MG
     Route: 058
     Dates: start: 20120426
  2. PREDNISONE [Concomitant]
     Indication: RHEUMATOID ARTHRITIS
     Route: 048
     Dates: start: 20110707

REACTIONS (3)
  - Premature delivery [Unknown]
  - Preterm premature rupture of membranes [Unknown]
  - Pregnancy [Recovered/Resolved]
